FAERS Safety Report 5221817-X (Version None)
Quarter: 2007Q1

REPORT INFORMATION
  Report Type: 
  Country: None (occurrence: None)
  Receive Date: 20070125
  Receipt Date: 20070125
  Transmission Date: 20070707
  Serious: No
  Sender: FDA-Public Use
  Company Number: None

PATIENT
  Age: 51 Year
  Sex: Female
  Weight: 102.0593 kg

DRUGS (1)
  1. ZOCOR [Suspect]
     Indication: BLOOD CHOLESTEROL INCREASED
     Dosage: 1 TABLET  IN   EVENING
     Dates: start: 20070102, end: 20070115

REACTIONS (9)
  - ASTHENIA [None]
  - FEELING ABNORMAL [None]
  - HYPERSOMNIA [None]
  - JOINT EFFUSION [None]
  - JOINT SWELLING [None]
  - MOVEMENT DISORDER [None]
  - MYALGIA [None]
  - SWELLING [None]
  - TENDERNESS [None]
